FAERS Safety Report 23688034 (Version 1)
Quarter: 2024Q1

REPORT INFORMATION
  Report Type: Report from Study
  Country: PL (occurrence: PL)
  Receive Date: 20240329
  Receipt Date: 20240329
  Transmission Date: 20240409
  Serious: Yes (Life-Threatening, Hospitalization)
  Sender: FDA-Public Use
  Company Number: PL-SUN PHARMACEUTICAL INDUSTRIES LTD-2023RR-435170

PATIENT
  Age: 63 Year
  Sex: Male
  Weight: 91 kg

DRUGS (6)
  1. PREGABALIN [Suspect]
     Active Substance: PREGABALIN
     Indication: Product used for unknown indication
     Dosage: UNK
     Route: 065
  2. VOBRAMITAMAB DUOCARMAZINE [Suspect]
     Active Substance: VOBRAMITAMAB DUOCARMAZINE
     Indication: Hormone-refractory prostate cancer
     Dosage: CYCLE 1, DAY 1 (C1D1)
     Route: 040
     Dates: start: 20230926, end: 20230926
  3. VOBRAMITAMAB DUOCARMAZINE [Suspect]
     Active Substance: VOBRAMITAMAB DUOCARMAZINE
     Dosage: CYCLE 2, DAY 1 (C2D1)
     Route: 040
     Dates: start: 20231024, end: 20231024
  4. NEBIVOLOL [Concomitant]
     Active Substance: NEBIVOLOL
     Indication: Product used for unknown indication
     Dosage: UNK
     Route: 065
  5. TRAZODONE HYDROCHLORIDE [Concomitant]
     Active Substance: TRAZODONE HYDROCHLORIDE
     Indication: Product used for unknown indication
     Dosage: UNK
     Route: 065
  6. METFORMIN [Concomitant]
     Active Substance: METFORMIN HYDROCHLORIDE
     Indication: Product used for unknown indication
     Dosage: UNK
     Route: 065

REACTIONS (1)
  - Anaemia [Not Recovered/Not Resolved]

NARRATIVE: CASE EVENT DATE: 20231121
